FAERS Safety Report 7780116-2 (Version None)
Quarter: 2011Q3

REPORT INFORMATION
  Report Type: 
  Country: None (occurrence: None)
  Receive Date: 20110927
  Receipt Date: 20110919
  Transmission Date: 20111222
  Serious: Yes (Hospitalization)
  Sender: FDA-Public Use
  Company Number: IT-NOVOPROD-334030

PATIENT

DRUGS (7)
  1. REPAGLINIDE [Suspect]
     Indication: DIABETES MELLITUS
     Dosage: 0,5 MG/OS
     Route: 048
     Dates: start: 20110415, end: 20110810
  2. FUROSEMIDE [Concomitant]
  3. TICLOPIDIN [Concomitant]
     Dosage: UNK
  4. ALLOPURINOL [Suspect]
     Indication: HYPERURICAEMIA
     Dosage: 150 MG, QD
     Route: 048
     Dates: start: 20110315, end: 20110810
  5. ESOMEPRAZOLE SODIUM [Concomitant]
     Dosage: UNK
  6. BISOPROLOL FUMARATE [Concomitant]
  7. LUVION                             /00252501/ [Concomitant]
     Dosage: UNK

REACTIONS (1)
  - ACUTE GENERALISED EXANTHEMATOUS PUSTULOSIS [None]
